FAERS Safety Report 6175544-5 (Version None)
Quarter: 2009Q2

REPORT INFORMATION
  Report Type: 
  Country: None (occurrence: None)
  Receive Date: 20090429
  Receipt Date: 20090414
  Transmission Date: 20091009
  Serious: Yes (Other)
  Sender: FDA-Public Use
  Company Number: 2009EK000025

PATIENT

DRUGS (4)
  1. RETEPLASE (RETEPLASE, RECOMBINANT) [Suspect]
     Indication: ACUTE MYOCARDIAL INFARCTION
     Dosage: X1; IV, X1; IV
     Route: 042
  2. ABCIXIMAB (ABCIXIMAB) [Suspect]
     Indication: ACUTE MYOCARDIAL INFARCTION
     Dosage: 0.25 MG/KG; X1; IV, 0.125 UG/KG; X1; IV
     Route: 042
  3. ASPIRIN [Concomitant]
  4. HEPARIN [Concomitant]

REACTIONS (4)
  - ARRHYTHMIA [None]
  - EPISTAXIS [None]
  - GASTROINTESTINAL HAEMORRHAGE [None]
  - HAEMATOMA [None]
